FAERS Safety Report 9159378 (Version 1)
Quarter: 2013Q1

REPORT INFORMATION
  Report Type: Spontaneous
  Country: US (occurrence: None)
  Receive Date: 20130312
  Receipt Date: 20130312
  Transmission Date: 20140127
  Serious: Yes (Life-Threatening, Hospitalization)
  Sender: FDA-Public Use
  Company Number: None

PATIENT
  Age: 59 Year
  Sex: Male
  Weight: 149.69 kg

DRUGS (12)
  1. BENICAR [Suspect]
     Indication: HYPERTENSION
     Dosage: 40 DAILY PO?EXP DATE 02/01/2014
     Route: 048
  2. COLCRYS [Concomitant]
  3. PRAVASTATIN [Concomitant]
  4. BENICAR [Concomitant]
  5. ALLOPURINOL [Concomitant]
  6. HYOSCYAMINE [Concomitant]
  7. FUROSEMIDE [Concomitant]
  8. NEXIUM [Concomitant]
  9. PRANDIN [Concomitant]
  10. CAVEDILOL [Concomitant]
  11. COENZYME [Concomitant]
  12. COQ10 [Concomitant]

REACTIONS (6)
  - Abdominal rigidity [None]
  - Nausea [None]
  - Drug ineffective [None]
  - Cardiac failure [None]
  - Condition aggravated [None]
  - Sleep disorder [None]
